FAERS Safety Report 7240489-6 (Version None)
Quarter: 2011Q1

REPORT INFORMATION
  Report Type: 
  Country: None (occurrence: None)
  Receive Date: 20110124
  Receipt Date: 20110120
  Transmission Date: 20110831
  Serious: No
  Sender: FDA-Public Use
  Company Number: US-PFIZER INC-2011014115

PATIENT
  Age: 64 Year
  Sex: Female

DRUGS (1)
  1. LIPITOR [Suspect]
     Indication: HEPATIC STEATOSIS
     Dosage: 10 MG, UNK

REACTIONS (3)
  - INFLUENZA LIKE ILLNESS [None]
  - FATIGUE [None]
  - PAIN [None]
